FAERS Safety Report 5095196-5 (Version None)
Quarter: 2006Q3

REPORT INFORMATION
  Report Type: 
  Country: None (occurrence: None)
  Receive Date: 20060901
  Receipt Date: 20060619
  Transmission Date: 20061208
  Serious: Yes (Other)
  Sender: FDA-Public Use
  Company Number: CN-GLAXOSMITHKLINE-B0428478A

PATIENT
  Age: 59 Year
  Sex: Male
  Weight: 85 kg

DRUGS (4)
  1. AVANDIA [Suspect]
     Indication: GLUCOSE TOLERANCE IMPAIRED
     Dosage: 4MG PER DAY
     Route: 065
     Dates: start: 20030501, end: 20060621
  2. GLUCOPHAGE [Concomitant]
     Route: 048
     Dates: start: 20030601
  3. LOTENSIN [Concomitant]
     Dosage: 10MG PER DAY
     Route: 048
     Dates: start: 20040601
  4. 8-HOUR BAYER [Concomitant]
     Dosage: 100MG PER DAY
     Route: 048
     Dates: start: 20040601

REACTIONS (4)
  - MACULAR OEDEMA [None]
  - READING DISORDER [None]
  - RETINAL PIGMENTATION [None]
  - VISUAL ACUITY REDUCED [None]
